FAERS Safety Report 4710573-7 (Version None)
Quarter: 2005Q3

REPORT INFORMATION
  Report Type: 
  Country: None (occurrence: None)
  Receive Date: 20050707
  Receipt Date: 20050623
  Transmission Date: 20060218
  Serious: Yes (Other)
  Sender: FDA-Public Use
  Company Number: 214965

PATIENT
  Age: 59 Year
  Sex: Female

DRUGS (6)
  1. RITUXAN [Suspect]
     Indication: NON-HODGKIN'S LYMPHOMA
     Dosage: 500 MG, 1/WEEK, INTRAVENOUS
     Route: 042
     Dates: start: 20010919, end: 20011024
  2. RESTAMIN (CHOLORPHENRAMINE MALEATE) [Concomitant]
  3. IBUPROFEN [Concomitant]
  4. MUCOSTA (REBAMIPIDE) [Concomitant]
  5. FAMOTIDINE [Concomitant]
  6. MAGNESIUM OXIDE (MAGNESIUM OXIDE) [Concomitant]

REACTIONS (4)
  - ALANINE AMINOTRANSFERASE INCREASED [None]
  - BLOOD LACTATE DEHYDROGENASE INCREASED [None]
  - LIVER DISORDER [None]
  - PLATELET COUNT DECREASED [None]
